FAERS Safety Report 17950767 (Version 2)
Quarter: 2020Q3

REPORT INFORMATION
  Report Type: Report from Study
  Country: IT (occurrence: IT)
  Receive Date: 20200626
  Receipt Date: 20200721
  Transmission Date: 20201103
  Serious: Yes (Hospitalization)
  Sender: FDA-Public Use
  Company Number: IT-MYLANLABS-2020M1058992

PATIENT
  Age: 92 Year
  Sex: Male

DRUGS (1)
  1. TICLOPIDINE [Suspect]
     Active Substance: TICLOPIDINE
     Indication: THROMBOSIS PROPHYLAXIS
     Dosage: 250 MILLIGRAM, QD
     Route: 048
     Dates: start: 20130101

REACTIONS (4)
  - Haematoma [Recovering/Resolving]
  - Fall [Recovering/Resolving]
  - Arterial haemorrhage [Recovering/Resolving]
  - Wound [Recovering/Resolving]

NARRATIVE: CASE EVENT DATE: 20200523
